FAERS Safety Report 8285534-4 (Version None)
Quarter: 2012Q2

REPORT INFORMATION
  Report Type: 
  Country: None (occurrence: None)
  Receive Date: 20120413
  Receipt Date: 20120118
  Transmission Date: 20120825
  Serious: No
  Sender: FDA-Public Use
  Company Number: US-ASTRAZENECA-2012SE03989

PATIENT
  Age: 52 Year
  Sex: Female

DRUGS (1)
  1. NEXIUM [Suspect]
     Dosage: 1 CAPSULE IN THE MORNING AND 1 CAPSULE AT NIGHT
     Route: 048

REACTIONS (2)
  - CHOKING [None]
  - INAPPROPRIATE SCHEDULE OF DRUG ADMINISTRATION [None]
